FAERS Safety Report 9396938 (Version 1)
Quarter: 2013Q3

REPORT INFORMATION
  Report Type: Spontaneous
  Country: US (occurrence: None)
  Receive Date: 20130710
  Receipt Date: 20130710
  Transmission Date: 20140515
  Serious: Yes (Hospitalization)
  Sender: FDA-Public Use
  Company Number: None

PATIENT
  Age: 56 Year
  Sex: Male
  Weight: 78.4 kg

DRUGS (2)
  1. PEGINTERFERON [Suspect]
     Indication: HEPATITIS C
     Dates: start: 20121019, end: 20130531
  2. RIBAVIRIN [Suspect]
     Indication: HEPATITIS C
     Route: 048
     Dates: start: 20120419, end: 20130603

REACTIONS (3)
  - Suicidal ideation [None]
  - Overdose [None]
  - Depression [None]
